FAERS Safety Report 11995186 (Version 1)
Quarter: 2016Q1

REPORT INFORMATION
  Report Type: Spontaneous
  Country: US (occurrence: US)
  Receive Date: 20160203
  Receipt Date: 20160203
  Transmission Date: 20160526
  Serious: No
  Sender: FDA-Public Use
  Company Number: US-UCBSA-2015031604

PATIENT
  Sex: Male
  Weight: 138 kg

DRUGS (6)
  1. MYSOLIN [Concomitant]
     Indication: SEIZURE
     Dosage: 250 MG TABLET; 2 TABS 2 TIMES A DAY
     Route: 048
  2. LYSINE [Concomitant]
     Active Substance: LYSINE
     Indication: PRODUCT USED FOR UNKNOWN INDICATION
  3. KEPPRA XR [Suspect]
     Active Substance: LEVETIRACETAM
     Indication: SEIZURE
     Dosage: UNKNOWN DOSE
  4. KEPPRA XR [Suspect]
     Active Substance: LEVETIRACETAM
     Dosage: 500 MG 6 TABS DAILY (1500-1500) (3 TABS AM NAD 3 TABS PM)
  5. KEPPRA XR [Suspect]
     Active Substance: LEVETIRACETAM
     Dosage: INCREASED LEV TO 1000-1500 MG (2 TABS AM AND 3 TABS PM)
  6. VITAMIN D3 [Concomitant]
     Active Substance: CHOLECALCIFEROL
     Indication: PRODUCT USED FOR UNKNOWN INDICATION
     Dosage: 5000 UNIT TABLET

REACTIONS (8)
  - Language disorder [Not Recovered/Not Resolved]
  - Inappropriate schedule of drug administration [Unknown]
  - Fear [Not Recovered/Not Resolved]
  - Abnormal behaviour [Not Recovered/Not Resolved]
  - Aura [Not Recovered/Not Resolved]
  - Prescribed overdose [Unknown]
  - Anger [Not Recovered/Not Resolved]
  - Off label use [Unknown]
